FAERS Safety Report 4639685-3 (Version None)
Quarter: 2005Q2

REPORT INFORMATION
  Report Type: 
  Country: None (occurrence: None)
  Receive Date: 20050328
  Receipt Date: 20041220
  Transmission Date: 20051028
  Serious: No
  Sender: FDA-Public Use
  Company Number: USA041286681

PATIENT
  Age: 39 Year
  Sex: Male
  Weight: 73 kg

DRUGS (1)
  1. STRATTERA [Suspect]
     Dosage: 40 MG DAY

REACTIONS (2)
  - PARAESTHESIA [None]
  - TREMOR [None]
